FAERS Safety Report 20368676 (Version 1)
Quarter: 2022Q1

REPORT INFORMATION
  Report Type: Report from Study
  Country: EG (occurrence: EG)
  Receive Date: 20220124
  Receipt Date: 20220124
  Transmission Date: 20220423
  Serious: Yes (Other)
  Sender: FDA-Public Use
  Company Number: EG-NOVARTISPH-NVSC2022EG010618

PATIENT
  Age: 25 Year
  Sex: Male

DRUGS (3)
  1. GILENYA [Suspect]
     Active Substance: FINGOLIMOD HYDROCHLORIDE
     Indication: Multiple sclerosis
     Dosage: 1 DOSAGE FORM, QD
     Route: 048
  2. VIDROP [Concomitant]
     Indication: Supplementation therapy
     Dosage: ONE BOTTLE WEEKLY
     Route: 065
  3. OMEGA 3 PLUS [Concomitant]
     Indication: Supplementation therapy
     Dosage: UNK UNK, QD
     Route: 065

REACTIONS (7)
  - Hepatic enzyme increased [Unknown]
  - Lymphocyte count decreased [Unknown]
  - Depressed level of consciousness [Not Recovered/Not Resolved]
  - Fatigue [Not Recovered/Not Resolved]
  - Dizziness [Not Recovered/Not Resolved]
  - Chest discomfort [Not Recovered/Not Resolved]
  - Dyspnoea [Not Recovered/Not Resolved]

NARRATIVE: CASE EVENT DATE: 20211201
